FAERS Safety Report 5791092-6 (Version None)
Quarter: 2008Q2

REPORT INFORMATION
  Report Type: 
  Country: None (occurrence: None)
  Receive Date: 20080626
  Receipt Date: 20080227
  Transmission Date: 20081010
  Serious: No
  Sender: FDA-Public Use
  Company Number: A0712159A

PATIENT
  Age: 60 Year
  Sex: Female

DRUGS (3)
  1. ALLI [Suspect]
     Dates: end: 20080225
  2. ANTIHYPERTENSIVE [Concomitant]
  3. TYLENOL [Concomitant]

REACTIONS (2)
  - MALAISE [None]
  - NAUSEA [None]
